FAERS Safety Report 16768145 (Version 2)
Quarter: 2019Q3

REPORT INFORMATION
  Report Type: Spontaneous
  Country: JP (occurrence: JP)
  Receive Date: 20190903
  Receipt Date: 20190917
  Transmission Date: 20191005
  Serious: Yes (Death)
  Sender: FDA-Public Use
  Company Number: JP-JNJFOC-20190839077

PATIENT
  Age: 69 Year
  Sex: Male

DRUGS (12)
  1. LEVOMEPROMAZINE MALEATE [Suspect]
     Active Substance: LEVOMEPROMAZINE MALEATE
     Indication: SCHIZOPHRENIA
     Route: 048
     Dates: start: 20190808, end: 20190827
  2. RISPERDAL [Suspect]
     Active Substance: RISPERIDONE
     Indication: SCHIZOPHRENIA
     Dosage: RISPERIDONE: 1MG
     Route: 048
     Dates: start: 20190808, end: 20190827
  3. LANDSEN [Suspect]
     Active Substance: CLONAZEPAM
     Indication: INSOMNIA
     Route: 048
     Dates: start: 20190808, end: 20190827
  4. VOGLIBOSE [Suspect]
     Active Substance: VOGLIBOSE
     Indication: DIABETES MELLITUS
     Route: 048
     Dates: start: 20190808, end: 20190827
  5. FLUNITRAZEPAM [Suspect]
     Active Substance: FLUNITRAZEPAM
     Indication: INSOMNIA
     Route: 048
     Dates: start: 20190808, end: 20190827
  6. NAFTOPIDIL [Suspect]
     Active Substance: NAFTOPIDIL
     Indication: DYSURIA
     Route: 048
     Dates: start: 20190808, end: 20190827
  7. JANUVIA [Suspect]
     Active Substance: SITAGLIPTIN PHOSPHATE
     Indication: DIABETES MELLITUS
     Route: 048
     Dates: start: 20190808, end: 20190827
  8. ZOTEPINE [Suspect]
     Active Substance: ZOTEPINE
     Indication: SCHIZOPHRENIA
     Route: 048
     Dates: start: 20190816, end: 20190827
  9. EURODIN (ESTAZOLAM) [Suspect]
     Active Substance: ESTAZOLAM
     Indication: INSOMNIA
     Route: 048
     Dates: start: 20190808, end: 20190827
  10. XEPLION [Suspect]
     Active Substance: PALIPERIDONE PALMITATE
     Indication: SCHIZOPHRENIA
     Dosage: PALIPERIDONE PALMITATE: 25MG
     Route: 030
     Dates: start: 20190815
  11. MAGNESIUM OXIDE. [Suspect]
     Active Substance: MAGNESIUM OXIDE
     Indication: CONSTIPATION
     Route: 048
     Dates: start: 20190808, end: 20190827
  12. UBRETID [Suspect]
     Active Substance: DISTIGMINE BROMIDE
     Indication: DYSURIA
     Route: 048
     Dates: start: 20190808, end: 20190827

REACTIONS (2)
  - Sudden death [Fatal]
  - Diabetes mellitus [Fatal]

NARRATIVE: CASE EVENT DATE: 20190827
